FAERS Safety Report 9165496 (Version 2)
Quarter: 2013Q1

REPORT INFORMATION
  Report Type: Spontaneous
  Country: JP (occurrence: JP)
  Receive Date: 20130315
  Receipt Date: 20130322
  Transmission Date: 20140127
  Serious: No
  Sender: FDA-Public Use
  Company Number: JP-NOVOPROD-372926

PATIENT
  Age: 80 Year
  Sex: Female

DRUGS (3)
  1. VICTOZA HIKACHU INJECTION [Suspect]
     Indication: DIABETES MELLITUS
     Dosage: QD
     Route: 058
  2. NOVORAPID CHU [Concomitant]
     Indication: DIABETES MELLITUS
     Dosage: UNK
  3. LANTUS [Concomitant]
     Indication: DIABETES MELLITUS
     Dosage: UNK

REACTIONS (1)
  - Decreased appetite [Not Recovered/Not Resolved]
